FAERS Safety Report 8958701 (Version 1)
Quarter: 2012Q4

REPORT INFORMATION
  Report Type: Report from Study
  Country: US (occurrence: US)
  Receive Date: 20121211
  Receipt Date: 20121211
  Transmission Date: 20130627
  Serious: Yes (Congenital Anomaly, Other)
  Sender: FDA-Public Use
  Company Number: US-ABBOTT-12P-163-1016500-00

PATIENT
  Sex: Male
  Weight: 3.43 kg

DRUGS (1)
  1. HUMIRA [Suspect]
     Indication: MATERNAL EXPOSURE TIMING UNSPECIFIED
     Route: 064

REACTIONS (2)
  - Hypospadias [Unknown]
  - Foetal exposure during pregnancy [Unknown]
